FAERS Safety Report 5859528-X (Version None)
Quarter: 2008Q3

REPORT INFORMATION
  Report Type: 
  Country: None (occurrence: None)
  Receive Date: 20080827
  Receipt Date: 20080819
  Transmission Date: 20090109
  Serious: Yes (Other)
  Sender: FDA-Public Use
  Company Number: A0743284A

PATIENT
  Age: 36 Year
  Sex: Female

DRUGS (2)
  1. PAXIL CR [Suspect]
     Indication: POSTPARTUM DEPRESSION
     Route: 048
     Dates: start: 20080516, end: 20080813
  2. ZYPREXA [Concomitant]
     Indication: POSTPARTUM DEPRESSION
     Dosage: 2.5MG PER DAY
     Route: 048

REACTIONS (6)
  - FLASHBACK [None]
  - ILL-DEFINED DISORDER [None]
  - NIGHTMARE [None]
  - PHOTOPSIA [None]
  - SUICIDAL IDEATION [None]
  - THINKING ABNORMAL [None]
